FAERS Safety Report 10907219 (Version 2)
Quarter: 2015Q3

REPORT INFORMATION
  Report Type: Spontaneous
  Country: CH (occurrence: CH)
  Receive Date: 20150312
  Receipt Date: 20150731
  Transmission Date: 20151125
  Serious: Yes (Hospitalization, Other)
  Sender: FDA-Public Use
  Company Number: CH-ABBVIE-15K-151-1358604-00

PATIENT
  Age: 36 Year
  Sex: Female

DRUGS (4)
  1. HUMIRA [Suspect]
     Active Substance: ADALIMUMAB
     Indication: CROHN^S DISEASE
     Route: 058
     Dates: start: 201304, end: 201402
  2. COLOSAN [Concomitant]
     Indication: IRRITABLE BOWEL SYNDROME
     Route: 048
     Dates: start: 20141028
  3. HUMIRA [Suspect]
     Active Substance: ADALIMUMAB
     Route: 058
     Dates: start: 201402
  4. IMUREK [Concomitant]
     Active Substance: AZATHIOPRINE
     Indication: CROHN^S DISEASE
     Route: 048
     Dates: start: 20140424

REACTIONS (4)
  - Headache [Recovered/Resolved]
  - Meningeal disorder [Recovered/Resolved]
  - Ileal stenosis [Recovering/Resolving]
  - Staphylococcal infection [Unknown]

NARRATIVE: CASE EVENT DATE: 201402
